FAERS Safety Report 7254897-0 (Version None)
Quarter: 2011Q1

REPORT INFORMATION
  Report Type: 
  Country: None (occurrence: None)
  Receive Date: 20110129
  Receipt Date: 20100322
  Transmission Date: 20110831
  Serious: No
  Sender: FDA-Public Use
  Company Number: US-ABBOTT-10P-163-0633585-00

PATIENT
  Sex: Female
  Weight: 68.1 kg

DRUGS (4)
  1. HUMIRA [Suspect]
     Indication: CROHN'S DISEASE
     Dates: start: 20090801
  2. CARAFATE [Concomitant]
     Indication: GASTROOESOPHAGEAL REFLUX DISEASE
  3. SULFASALAZINE [Concomitant]
     Indication: CROHN'S DISEASE
  4. CYMBALTA [Concomitant]
     Indication: CROHN'S DISEASE

REACTIONS (3)
  - URINARY TRACT INFECTION [None]
  - KIDNEY INFECTION [None]
  - UPPER RESPIRATORY TRACT INFECTION [None]
